FAERS Safety Report 4380472-1 (Version None)
Quarter: 2004Q2

REPORT INFORMATION
  Report Type: 
  Country: None (occurrence: None)
  Receive Date: 20040618
  Receipt Date: 20040607
  Transmission Date: 20050107
  Serious: Yes (Hospitalization)
  Sender: FDA-Public Use
  Company Number: JP-JNJFOC-20040502761

PATIENT
  Sex: Female
  Weight: 46 kg

DRUGS (7)
  1. REMICADE [Suspect]
     Route: 041
     Dates: start: 20030331
  2. REMICADE [Suspect]
     Route: 041
     Dates: start: 20030331
  3. REMICADE [Suspect]
     Route: 041
     Dates: start: 20030331
  4. REMICADE [Suspect]
     Indication: CROHN'S DISEASE
     Route: 041
     Dates: start: 20030331
  5. SULFASALAZINE [Concomitant]
     Indication: CROHN'S DISEASE
     Route: 049
  6. PENTASA [Concomitant]
     Indication: CROHN'S DISEASE
     Route: 049
  7. LOPERMIN C [Concomitant]
     Indication: CROHN'S DISEASE
     Dosage: POWDER
     Route: 049

REACTIONS (3)
  - ANAEMIA [None]
  - BRAIN ABSCESS [None]
  - ENCEPHALITIS HERPES [None]
